FAERS Safety Report 13873471 (Version 1)
Quarter: 2017Q3

REPORT INFORMATION
  Report Type: Spontaneous
  Country: ES (occurrence: ES)
  Receive Date: 20170816
  Receipt Date: 20170816
  Transmission Date: 20171127
  Serious: Yes (Hospitalization)
  Sender: FDA-Public Use
  Company Number: ES-AUROBINDO-09-AUR-09131

PATIENT
  Age: 73 Year
  Sex: Male

DRUGS (6)
  1. CLOPIDOGREL [Interacting]
     Active Substance: CLOPIDOGREL BISULFATE
     Indication: HYPERTENSIVE CARDIOMYOPATHY
  2. CLOPIDOGREL [Interacting]
     Active Substance: CLOPIDOGREL BISULFATE
     Indication: ISCHAEMIC STROKE
  3. LORAZEPAM. [Concomitant]
     Active Substance: LORAZEPAM
     Indication: PRODUCT USED FOR UNKNOWN INDICATION
     Dosage: 1 MG, ONCE A DAY
     Route: 065
  4. PAROXETINA CEFT COMPRIMIDOS RECUBIERTOS CON PELICULA 20MG [Suspect]
     Active Substance: PAROXETINE HYDROCHLORIDE
     Indication: HYPERTENSIVE CARDIOMYOPATHY
     Dosage: 20 MG,DAILY,
     Route: 065
  5. PAROXETINA CEFT COMPRIMIDOS RECUBIERTOS  CON PELICULA 20MG [Interacting]
     Active Substance: PAROXETINE HYDROCHLORIDE
     Indication: ISCHAEMIC STROKE
  6. CLOPIDOGREL [Interacting]
     Active Substance: CLOPIDOGREL BISULFATE
     Indication: HYPERTENSION
     Dosage: 75 MG,DAILY,
     Route: 065

REACTIONS (6)
  - Haematochezia [Unknown]
  - Gastrointestinal haemorrhage [Recovered/Resolved]
  - Drug interaction [Recovered/Resolved]
  - Syncope [Unknown]
  - Haematemesis [Unknown]
  - Gastric ulcer [None]
